FAERS Safety Report 6321962-1 (Version None)
Quarter: 2009Q3

REPORT INFORMATION
  Report Type: 
  Country: None (occurrence: None)
  Receive Date: 20090824
  Receipt Date: 20090724
  Transmission Date: 20100115
  Serious: No
  Sender: FDA-Public Use
  Company Number: US-BAYER-200839133NA

PATIENT
  Age: 30 Year
  Sex: Female

DRUGS (4)
  1. BETASERON [Suspect]
     Indication: RELAPSING-REMITTING MULTIPLE SCLEROSIS
     Dosage: TOTAL DAILY DOSE: 0.3 MG
     Route: 058
     Dates: start: 20081001
  2. TOPAMAX [Concomitant]
     Indication: CONVULSION
  3. TOPRO [Concomitant]
     Indication: HEART RATE INCREASED
  4. PAMALAR [Concomitant]
     Indication: ADVERSE EVENT

REACTIONS (4)
  - CONTUSION [None]
  - ERYTHEMA [None]
  - LOCAL SWELLING [None]
  - TENDERNESS [None]
